FAERS Safety Report 7879021-2 (Version None)
Quarter: 2011Q4

REPORT INFORMATION
  Report Type: 
  Country: None (occurrence: None)
  Receive Date: 20111025
  Receipt Date: 20110220
  Transmission Date: 20120403
  Serious: No
  Sender: FDA-Public Use
  Company Number: 2011-00758

PATIENT
  Age: 34 Year
  Sex: Male

DRUGS (1)
  1. TUBERSOL [Suspect]
     Indication: TUBERCULIN TEST
     Dosage: I.D.
     Route: 023
     Dates: start: 20110219, end: 20110219

REACTIONS (6)
  - HYPERSENSITIVITY [None]
  - EYELID OEDEMA [None]
  - OCULAR HYPERAEMIA [None]
  - VACCINATION SITE ERYTHEMA [None]
  - JOINT SWELLING [None]
  - URTICARIA [None]
